FAERS Safety Report 7630759-1 (Version None)
Quarter: 2011Q3

REPORT INFORMATION
  Report Type: 
  Country: None (occurrence: None)
  Receive Date: 20110722
  Receipt Date: 20110714
  Transmission Date: 20111222
  Serious: Yes (Other)
  Sender: FDA-Public Use
  Company Number: FI-AMGEN-FINCT2011035953

PATIENT
  Age: 72 Year
  Sex: Male

DRUGS (1)
  1. DENOSUMAB [Suspect]
     Indication: PROSTATE CANCER

REACTIONS (1)
  - PAIN IN JAW [None]
